FAERS Safety Report 6905388-5 (Version None)
Quarter: 2010Q3

REPORT INFORMATION
  Report Type: 
  Country: None (occurrence: None)
  Receive Date: 20100804
  Receipt Date: 20100729
  Transmission Date: 20110219
  Serious: Yes (Death, Hospitalization, Other)
  Sender: FDA-Public Use
  Company Number: ES-CELGENEUS-144-50794-10052592

PATIENT
  Sex: Female
  Weight: 69 kg

DRUGS (2)
  1. VIDAZA [Suspect]
     Route: 050
     Dates: start: 20071101, end: 20090725
  2. DARBEPOETIN [Concomitant]
     Route: 065
     Dates: start: 20061101, end: 20070320

REACTIONS (10)
  - ANAEMIA [None]
  - CARDIAC FAILURE [None]
  - DECUBITUS ULCER [None]
  - FEMUR FRACTURE [None]
  - GAIT DISTURBANCE [None]
  - GENERAL PHYSICAL HEALTH DETERIORATION [None]
  - MALIGNANT NEOPLASM PROGRESSION [None]
  - MYELODYSPLASTIC SYNDROME [None]
  - NEUTROPENIA [None]
  - RENAL IMPAIRMENT [None]
